FAERS Safety Report 6885162-9 (Version None)
Quarter: 2010Q3

REPORT INFORMATION
  Report Type: 
  Country: None (occurrence: None)
  Receive Date: 20100729
  Receipt Date: 20080602
  Transmission Date: 20110219
  Serious: No
  Sender: FDA-Public Use
  Company Number: US-PFIZER INC-2007106554

PATIENT
  Sex: Male
  Weight: 84 kg

DRUGS (3)
  1. CELEBREX [Suspect]
     Indication: ARTHRITIS
     Dates: start: 20070101, end: 20071215
  2. THYROID TAB [Concomitant]
  3. DRUG USED IN DIABETES [Concomitant]

REACTIONS (3)
  - ARTHRALGIA [None]
  - DYSPHAGIA [None]
  - WEIGHT DECREASED [None]
